FAERS Safety Report 6870955-4 (Version None)
Quarter: 2010Q3

REPORT INFORMATION
  Report Type: 
  Country: None (occurrence: None)
  Receive Date: 20100723
  Receipt Date: 20100712
  Transmission Date: 20110219
  Serious: Yes (Hospitalization)
  Sender: FDA-Public Use
  Company Number: US-ELI_LILLY_AND_COMPANY-US201007002332

PATIENT
  Sex: Male

DRUGS (9)
  1. GEMCITABINE HCL [Suspect]
     Indication: TRANSITIONAL CELL CARCINOMA
     Dosage: 1520 MG, UNK
     Dates: start: 20100614
  2. PACLITAXEL [Suspect]
     Indication: TRANSITIONAL CELL CARCINOMA
     Dosage: 494 MG, UNK
     Dates: start: 20100614
  3. CARBOPLATIN [Suspect]
     Indication: TRANSITIONAL CELL CARCINOMA
     Dosage: 365 MG, UNK
     Dates: start: 20100614
  4. ACETAMINOPHEN [Concomitant]
     Indication: PAIN
     Dosage: 325 MG, AS NEEDED
     Route: 048
  5. SIMVASTATIN [Concomitant]
     Indication: HYPERTENSION
     Dosage: 40 MG, UNK
     Route: 048
  6. ASPIRIN [Concomitant]
     Indication: PROPHYLAXIS
     Dosage: 81 MG, UNK
     Route: 048
  7. CALCIUM VIT D [Concomitant]
     Indication: VITAMIN SUPPLEMENTATION
     Route: 048
  8. EMLA [Concomitant]
     Route: 061
     Dates: start: 20100621
  9. COMPAZINE [Concomitant]
     Indication: NAUSEA
     Dosage: 10 MG, AS NEEDED
     Route: 048
     Dates: start: 20100614

REACTIONS (4)
  - GASTROINTESTINAL HAEMORRHAGE [None]
  - NEUTROPHIL COUNT DECREASED [None]
  - PLATELET COUNT DECREASED [None]
  - WHITE BLOOD CELL COUNT DECREASED [None]
